FAERS Safety Report 9847230 (Version 1)
Quarter: 2014Q1

REPORT INFORMATION
  Report Type: Report from Study
  Country: US (occurrence: US)
  Receive Date: 20140127
  Receipt Date: 20140127
  Transmission Date: 20141002
  Serious: No
  Sender: FDA-Public Use
  Company Number: US-GILEAD-2014-0092643

PATIENT
  Age: 66 Year
  Sex: Male

DRUGS (3)
  1. SOFOSBUVIR [Suspect]
     Indication: HEPATITIS C
     Dosage: 400 MG, UNK
     Route: 065
     Dates: start: 20140117
  2. TRUVADA [Suspect]
     Indication: HIV INFECTION
     Route: 065
  3. SIMEPREVIR [Concomitant]
     Dosage: UNK
     Dates: start: 20140117

REACTIONS (2)
  - Nervousness [Unknown]
  - Off label use [Unknown]
